FAERS Safety Report 5586429-7 (Version None)
Quarter: 2008Q1

REPORT INFORMATION
  Report Type: 
  Country: None (occurrence: None)
  Receive Date: 20080108
  Receipt Date: 20080108
  Transmission Date: 20080703
  Serious: Yes (Hospitalization)
  Sender: FDA-Public Use
  Company Number: None

PATIENT
  Age: 63 Year
  Sex: Female

DRUGS (1)
  1. ISONIAZID [Suspect]
     Indication: TUBERCULIN TEST POSITIVE

REACTIONS (7)
  - ARTHRALGIA [None]
  - ENDOCARDITIS [None]
  - ENTEROCOCCAL SEPSIS [None]
  - PYREXIA [None]
  - SEPSIS [None]
  - STAPHYLOCOCCAL INFECTION [None]
  - THROMBOSIS [None]
